FAERS Safety Report 24015437 (Version 1)
Quarter: 2024Q2

REPORT INFORMATION
  Report Type: Spontaneous
  Country: US (occurrence: US)
  Receive Date: 20240626
  Receipt Date: 20240626
  Transmission Date: 20240716
  Serious: Yes (Hospitalization, Other)
  Sender: FDA-Public Use
  Company Number: US-PFM-2024-03611

PATIENT
  Age: 27 Year
  Sex: Male

DRUGS (4)
  1. PROPRANOLOL [Suspect]
     Active Substance: PROPRANOLOL HYDROCHLORIDE
     Indication: Hyperthyroidism
     Dosage: UNK
     Route: 065
  2. PROPRANOLOL [Suspect]
     Active Substance: PROPRANOLOL HYDROCHLORIDE
     Indication: Off label use
  3. UNSPECIFIED INGREDIENT [Suspect]
     Active Substance: UNSPECIFIED INGREDIENT
     Indication: Hyperthyroidism
     Dosage: UNK
     Route: 065
  4. METHIMAZOLE [Suspect]
     Active Substance: METHIMAZOLE
     Indication: Hyperthyroidism
     Dosage: UNK
     Route: 065

REACTIONS (13)
  - Gastrointestinal haemorrhage [Unknown]
  - Cardiac failure congestive [Unknown]
  - Atrial thrombosis [Recovered/Resolved]
  - Cardiogenic shock [Unknown]
  - Colitis ischaemic [Unknown]
  - Acute kidney injury [Unknown]
  - Erosive oesophagitis [Unknown]
  - Respiratory failure [Unknown]
  - Acute respiratory distress syndrome [Unknown]
  - Liver injury [Unknown]
  - Product use issue [Unknown]
  - Product use in unapproved indication [Unknown]
  - Off label use [Unknown]
